FAERS Safety Report 24073392 (Version 1)
Quarter: 2024Q3

REPORT INFORMATION
  Report Type: Spontaneous
  Country: BE (occurrence: BE)
  Receive Date: 20240710
  Receipt Date: 20240710
  Transmission Date: 20241017
  Serious: Yes (Hospitalization, Other)
  Sender: PFIZER
  Company Number: BE-ROCHE-3242036

PATIENT
  Age: 66 Year
  Sex: Female
  Weight: 42 kg

DRUGS (6)
  1. TUKYSA [Suspect]
     Active Substance: TUCATINIB
     Indication: HER2 positive breast cancer
     Dosage: BID
     Route: 048
     Dates: start: 20221026
  2. CAPECITABINE [Suspect]
     Active Substance: CAPECITABINE
     Indication: HER2 positive breast cancer
     Dosage: 1000 MG/M2, ON DAYS 1-14 ONLY OF A 21-DAY CYCLE
     Route: 048
     Dates: start: 20221025
  3. TRASTUZUMAB [Suspect]
     Active Substance: TRASTUZUMAB
     Indication: HER2 positive breast cancer
     Dosage: 288 MG ON DAY 1 OF EVERY 21-DAY CYCLE
     Route: 058
     Dates: start: 20221025
  4. ASPIRIN [Concomitant]
     Active Substance: ASPIRIN
     Dates: start: 2017
  5. ATORVASTATIN [Concomitant]
     Active Substance: ATORVASTATIN
     Dates: start: 2020
  6. DEXPANTHENOL [Concomitant]
     Active Substance: DEXPANTHENOL
     Dates: start: 2017

REACTIONS (2)
  - Adrenal insufficiency [Recovered/Resolved]
  - Colitis [Recovered/Resolved]

NARRATIVE: CASE EVENT DATE: 20221114
